FAERS Safety Report 16215926 (Version 2)
Quarter: 2019Q2

REPORT INFORMATION
  Report Type: Spontaneous
  Country: US (occurrence: US)
  Receive Date: 20190419
  Receipt Date: 20190521
  Transmission Date: 20190711
  Serious: Yes (Hospitalization, Other)
  Sender: FDA-Public Use
  Company Number: US-ASTRAZENECA-2019SE56726

PATIENT
  Age: 23992 Day
  Sex: Female
  Weight: 46.7 kg

DRUGS (10)
  1. LYNPARZA [Suspect]
     Active Substance: OLAPARIB
     Indication: BRCA1 GENE MUTATION
     Dosage: 150 MG IN THE MORNING AND 300 MG IN THE EVENING
     Route: 048
     Dates: start: 20190429
  2. TRAMADOL. [Concomitant]
     Active Substance: TRAMADOL
     Indication: PAIN
     Dosage: 1 TABLET BY MOUTH EVERY SIX HOURS AS NEEDED
     Route: 048
  3. METOPROLOL TARTRATE. [Suspect]
     Active Substance: METOPROLOL TARTRATE
     Dosage: 25.0MG UNKNOWN
     Route: 048
  4. LYNPARZA [Suspect]
     Active Substance: OLAPARIB
     Indication: OVARIAN CANCER STAGE III
     Dosage: 150 MG IN THE MORNING AND 300 MG IN THE EVENING
     Route: 048
     Dates: start: 20190429
  5. LYNPARZA [Suspect]
     Active Substance: OLAPARIB
     Indication: BRCA1 GENE MUTATION
     Route: 048
     Dates: start: 20190109, end: 20190406
  6. POTASSIUM [Concomitant]
     Active Substance: POTASSIUM
     Route: 048
  7. METOPROLOL TARTRATE. [Suspect]
     Active Substance: METOPROLOL TARTRATE
     Dosage: 0.5 TABLET (12.5 MG TOTAL) DAILY UNKNOWN
     Route: 048
  8. ATORVASTATIN [Concomitant]
     Active Substance: ATORVASTATIN
     Route: 048
  9. TYLENOL [Concomitant]
     Active Substance: ACETAMINOPHEN
     Dosage: AS REQUIRED
     Route: 065
  10. LYNPARZA [Suspect]
     Active Substance: OLAPARIB
     Indication: OVARIAN CANCER STAGE III
     Route: 048
     Dates: start: 20190109, end: 20190406

REACTIONS (17)
  - Type V hyperlipidaemia [Unknown]
  - Pleural effusion [Unknown]
  - Decreased appetite [Unknown]
  - Systemic inflammatory response syndrome [Unknown]
  - Leukopenia [Unknown]
  - Metastases to peritoneum [Unknown]
  - Ovarian cancer stage III [Unknown]
  - Deep vein thrombosis [Unknown]
  - Essential hypertension [Unknown]
  - Hypokalaemia [Unknown]
  - Fallopian tube cancer [Unknown]
  - Malignant ascites [Unknown]
  - Hyponatraemia [Unknown]
  - Atelectasis [Unknown]
  - Acute kidney injury [Unknown]
  - Febrile neutropenia [Recovered/Resolved]
  - Metastatic neoplasm [Unknown]

NARRATIVE: CASE EVENT DATE: 20190406
